FAERS Safety Report 20597734 (Version 1)
Quarter: 2022Q1

REPORT INFORMATION
  Report Type: Spontaneous
  Country: US (occurrence: US)
  Receive Date: 20220315
  Receipt Date: 20220315
  Transmission Date: 20220423
  Serious: No
  Sender: FDA-Public Use
  Company Number: US-BRISTOL-MYERS SQUIBB COMPANY-BMS-2022-035119

PATIENT
  Age: 64 Year
  Sex: Female
  Weight: 68.027 kg

DRUGS (1)
  1. SPRYCEL [Suspect]
     Active Substance: DASATINIB
     Indication: Chronic myeloid leukaemia
     Dosage: 50 MILLIGRAM, QD
     Route: 048
     Dates: start: 2015

REACTIONS (3)
  - Treatment noncompliance [Unknown]
  - COVID-19 [Recovered/Resolved]
  - Full blood count increased [Unknown]

NARRATIVE: CASE EVENT DATE: 20210501
